FAERS Safety Report 5924400-3 (Version None)
Quarter: 2008Q4

REPORT INFORMATION
  Report Type: 
  Country: None (occurrence: None)
  Receive Date: 20081020
  Receipt Date: 20081009
  Transmission Date: 20090506
  Serious: No
  Sender: FDA-Public Use
  Company Number: US-B.I. PHARMACEUTICALS,INC./RIDGEFIELD-2008-BP-12898BP

PATIENT
  Age: 73 Year
  Sex: Male

DRUGS (8)
  1. FLOMAX [Suspect]
     Indication: BENIGN PROSTATIC HYPERPLASIA
     Dosage: .4MG
     Route: 048
     Dates: start: 20030101
  2. FLOMAX [Suspect]
     Indication: NEUROGENIC BLADDER
  3. FLOMAX [Suspect]
     Indication: MICTURITION URGENCY
  4. SINEMET [Suspect]
     Indication: PARKINSON'S DISEASE
  5. AVODART [Concomitant]
     Indication: BENIGN PROSTATIC HYPERPLASIA
  6. VITAMIN D [Concomitant]
     Indication: OSTEOPOROSIS
  7. CALCIUM [Concomitant]
     Indication: OSTEOPOROSIS
  8. LOVAZA [Concomitant]
     Indication: OSTEOPOROSIS

REACTIONS (6)
  - BACK PAIN [None]
  - BRADYCARDIA [None]
  - DENTAL CARIES [None]
  - DRY MOUTH [None]
  - OSTEOPOROSIS [None]
  - VISION BLURRED [None]
